FAERS Safety Report 24977165 (Version 2)
Quarter: 2025Q1

REPORT INFORMATION
  Report Type: Spontaneous
  Country: US (occurrence: US)
  Receive Date: 20250217
  Receipt Date: 20250326
  Transmission Date: 20250409
  Serious: Yes (Death)
  Sender: ELI LILLY AND COMPANY
  Company Number: US-ELI_LILLY_AND_COMPANY-US202502009937

PATIENT
  Age: 75 Year
  Sex: Male
  Weight: 108.84 kg

DRUGS (1)
  1. AMYVID [Suspect]
     Active Substance: FLORBETAPIR F-18
     Indication: Dementia Alzheimer^s type
     Route: 040
     Dates: start: 20250211, end: 20250211

REACTIONS (1)
  - Cardiac arrest [Fatal]

NARRATIVE: CASE EVENT DATE: 20250211
